FAERS Safety Report 6067754-2 (Version None)
Quarter: 2009Q1

REPORT INFORMATION
  Report Type: 
  Country: None (occurrence: None)
  Receive Date: 20090203
  Receipt Date: 20090122
  Transmission Date: 20090719
  Serious: Yes (Hospitalization)
  Sender: FDA-Public Use
  Company Number: 20090019

PATIENT
  Age: 73 Year
  Sex: Male
  Weight: 68 kg

DRUGS (11)
  1. ASCORBIC ACID INJECTION, USP         (5050-01) 500 MG/ML [Suspect]
     Indication: MYELODYSPLASTIC SYNDROME
     Dosage: 1000 MG (D1-5 Q WK)
     Route: 042
     Dates: start: 20081209
  2. ARSENIC TRIOXIDE [Suspect]
     Indication: MYELODYSPLASTIC SYNDROME
     Dosage: 0.1 MG/KG D1-5 Q WK
     Dates: start: 20081209
  3. DECITABINE [Suspect]
     Indication: MYELODYSPLASTIC SYNDROME
     Dosage: 20MG/M2 D1-5
     Dates: start: 20081209
  4. METOPROLOL TARTRATE [Concomitant]
  5. LISINOPRIL [Concomitant]
  6. ZETIA [Concomitant]
  7. FLOMAX [Concomitant]
  8. LYRICA [Concomitant]
  9. ALLOPURINOL [Concomitant]
  10. HYDREA [Concomitant]
  11. PROTONIX [Concomitant]

REACTIONS (16)
  - EPISTAXIS [None]
  - FALL [None]
  - GINGIVAL BLEEDING [None]
  - HAEMATEMESIS [None]
  - HAEMATOCRIT DECREASED [None]
  - HAEMATOMA [None]
  - HAEMOGLOBIN DECREASED [None]
  - LOWER GASTROINTESTINAL HAEMORRHAGE [None]
  - MELAENA [None]
  - PULMONARY HAEMORRHAGE [None]
  - PYREXIA [None]
  - RENAL FAILURE ACUTE [None]
  - RESPIRATORY TRACT HAEMORRHAGE [None]
  - SKIN LACERATION [None]
  - THROMBOCYTOPENIA [None]
  - WHITE BLOOD CELL COUNT INCREASED [None]
